FAERS Safety Report 7860886-5 (Version None)
Quarter: 2011Q4

REPORT INFORMATION
  Report Type: 
  Country: None (occurrence: None)
  Receive Date: 20111027
  Receipt Date: 20111018
  Transmission Date: 20120403
  Serious: Yes (Hospitalization)
  Sender: FDA-Public Use
  Company Number: GB-ASTRAZENECA-2011SE62895

PATIENT
  Age: 30 Year
  Sex: Male

DRUGS (3)
  1. CITALOPRAM HYDROBROMIDE [Concomitant]
  2. AMOXICILLIN [Concomitant]
     Indication: TOOTHACHE
  3. SEROQUEL [Suspect]
     Indication: MAJOR DEPRESSION
     Route: 048

REACTIONS (2)
  - TOOTHACHE [None]
  - PRIAPISM [None]
